FAERS Safety Report 8615233-8 (Version None)
Quarter: 2012Q3

REPORT INFORMATION
  Report Type: 
  Country: None (occurrence: None)
  Receive Date: 20120823
  Receipt Date: 20120816
  Transmission Date: 20120928
  Serious: No
  Sender: FDA-Public Use
  Company Number: US-PFIZER INC-2012202570

PATIENT
  Age: 68 Year
  Sex: Male
  Weight: 73.469 kg

DRUGS (1)
  1. VIAGRA [Suspect]
     Indication: PROSTATOMEGALY
     Dosage: 100 MG, AS NEEDED
     Dates: start: 20100101

REACTIONS (2)
  - DRUG INEFFECTIVE [None]
  - OFF LABEL USE [None]
